FAERS Safety Report 7215165-6 (Version None)
Quarter: 2011Q1

REPORT INFORMATION
  Report Type: 
  Country: None (occurrence: None)
  Receive Date: 20110107
  Receipt Date: 20100928
  Transmission Date: 20110831
  Serious: No
  Sender: FDA-Public Use
  Company Number: A0883757A

PATIENT
  Sex: Female

DRUGS (5)
  1. TOPROL-XL [Concomitant]
  2. BENICAR [Concomitant]
  3. ASPIRIN [Concomitant]
  4. XANAX [Concomitant]
  5. LOVAZA [Suspect]
     Dosage: 2CAP TWICE PER DAY
     Route: 048

REACTIONS (3)
  - BACK PAIN [None]
  - BLOOD TRIGLYCERIDES INCREASED [None]
  - DRUG INEFFECTIVE [None]
